FAERS Safety Report 4321212-1 (Version None)
Quarter: 2004Q1

REPORT INFORMATION
  Report Type: 
  Country: None (occurrence: None)
  Receive Date: 20040322
  Receipt Date: 20040322
  Transmission Date: 20041129
  Serious: Yes (Hospitalization)
  Sender: FDA-Public Use
  Company Number: None

PATIENT
  Age: 56 Year
  Sex: Male
  Weight: 80 kg

DRUGS (12)
  1. METRONIDAZOLE [Suspect]
     Indication: CLOSTRIDIUM COLITIS
     Dosage: 500MG Q12H ORAL
     Route: 048
     Dates: start: 20040109, end: 20040122
  2. DIGOXIN [Concomitant]
  3. LANOXIN [Concomitant]
  4. FOSINOPRIL NA [Concomitant]
  5. FUROSEMIDE [Concomitant]
  6. HUMULIN R [Concomitant]
  7. KERLIX [Concomitant]
  8. METFORMIN HCL [Concomitant]
  9. METOPROLOL TARTRATE [Interacting]
  10. SILVA ANTIMICROBIAL WOUND GEL SR [Concomitant]
  11. WARFARIN SODIUM [Concomitant]
  12. COUMADIN [Concomitant]

REACTIONS (4)
  - CLOSTRIDIUM COLITIS [None]
  - HYPOKALAEMIA [None]
  - INTERNATIONAL NORMALISED RATIO INCREASED [None]
  - TOE AMPUTATION [None]
